FAERS Safety Report 7126268-9 (Version None)
Quarter: 2010Q4

REPORT INFORMATION
  Report Type: 
  Country: None (occurrence: None)
  Receive Date: 20101129
  Receipt Date: 20101119
  Transmission Date: 20110411
  Serious: Yes (Other)
  Sender: FDA-Public Use
  Company Number: US-MYLANLABS-2010S1014316

PATIENT
  Age: 30 Year
  Sex: Male
  Weight: 83.92 kg

DRUGS (3)
  1. AMNESTEEM [Suspect]
     Indication: ACNE
     Route: 048
     Dates: start: 20100426
  2. GEMFIBROZIL [Concomitant]
     Dates: start: 20100901
  3. CITALOPRAM HYDROBROMIDE [Concomitant]
     Dates: start: 20100601

REACTIONS (1)
  - DRUG EXPOSURE DURING PREGNANCY [None]
